FAERS Safety Report 4975963-6 (Version None)
Quarter: 2006Q2

REPORT INFORMATION
  Report Type: 
  Country: None (occurrence: None)
  Receive Date: 20060418
  Receipt Date: 20050929
  Transmission Date: 20061013
  Serious: Yes (Hospitalization)
  Sender: FDA-Public Use
  Company Number: US-MERCK-0510USA01361

PATIENT
  Age: 76 Year
  Sex: Female
  Weight: 81 kg

DRUGS (5)
  1. VIOXX [Suspect]
     Indication: BACK PAIN
     Route: 048
     Dates: start: 19990101, end: 20030919
  2. PAXIL [Concomitant]
     Route: 048
  3. METOPROLOL [Concomitant]
     Route: 048
  4. ASPIRIN [Concomitant]
     Route: 048
  5. LIPITOR [Concomitant]
     Route: 048

REACTIONS (15)
  - CARDIAC MURMUR [None]
  - CEREBROVASCULAR ACCIDENT [None]
  - CHEST DISCOMFORT [None]
  - CHOLELITHIASIS [None]
  - CONFUSIONAL STATE [None]
  - CONVULSION [None]
  - DEMENTIA [None]
  - DEPRESSION [None]
  - DISEASE PROGRESSION [None]
  - DIZZINESS [None]
  - LETHARGY [None]
  - MITRAL VALVE INCOMPETENCE [None]
  - MYOCARDIAL INFARCTION [None]
  - ORTHOPNOEA [None]
  - SYNCOPE [None]
